FAERS Safety Report 10253806 (Version 1)
Quarter: 2014Q2

REPORT INFORMATION
  Report Type: Spontaneous
  Country: US (occurrence: US)
  Receive Date: 20140623
  Receipt Date: 20140623
  Transmission Date: 20141212
  Serious: No
  Sender: FDA-Public Use
  Company Number: US-ZOGENIX, INC.-2011ZX000531

PATIENT
  Age: 38 Year
  Sex: Female
  Weight: 58.57 kg

DRUGS (5)
  1. SUMAVEL DOSEPRO [Suspect]
     Indication: MIGRAINE
     Dates: start: 20111101, end: 20111102
  2. SUMATRIPTAN [Concomitant]
     Indication: MIGRAINE
     Route: 048
  3. PREDNISONE [Concomitant]
     Indication: PRODUCT USED FOR UNKNOWN INDICATION
  4. LIDOCAINE [Concomitant]
     Indication: MIGRAINE
     Route: 061
  5. VICODIN [Concomitant]
     Indication: PAIN
     Route: 048

REACTIONS (6)
  - Discomfort [Recovered/Resolved]
  - Incorrect dose administered by device [Recovered/Resolved]
  - Muscle tightness [Recovered/Resolved]
  - Injection site haemorrhage [Recovered/Resolved]
  - Injection site urticaria [Recovered/Resolved]
  - Drug ineffective [Recovered/Resolved]
